FAERS Safety Report 18901941 (Version 2)
Quarter: 2021Q1

REPORT INFORMATION
  Report Type: Report from Study
  Country: None (occurrence: SE)
  Receive Date: 20210217
  Receipt Date: 20210225
  Transmission Date: 20210420
  Serious: Yes (Death, Life-Threatening, Hospitalization, Other)
  Sender: FDA-Public Use
  Company Number: SE-ABBVIE-21K-150-3777246-00

PATIENT
  Age: 69 Year
  Sex: Male

DRUGS (2)
  1. DUODOPA [Suspect]
     Active Substance: CARBIDOPA\LEVODOPA
  2. DUODOPA [Suspect]
     Active Substance: CARBIDOPA\LEVODOPA
     Indication: PARKINSON^S DISEASE
     Dosage: THERAPY DURATION: REMAINED AT 16H
     Route: 050
     Dates: start: 20170501, end: 20210215

REACTIONS (13)
  - Palliative care [Fatal]
  - General physical health deterioration [Unknown]
  - Pneumonia [Unknown]
  - Upper respiratory tract infection [Fatal]
  - Pneumonia [Unknown]
  - Swelling [Unknown]
  - C-reactive protein abnormal [Unknown]
  - Orchitis [Recovered/Resolved]
  - Parkinson^s disease [Fatal]
  - Blood sodium decreased [Recovering/Resolving]
  - Wheezing [Unknown]
  - Cyanosis [Unknown]
  - Testicular torsion [Recovered/Resolved]

NARRATIVE: CASE EVENT DATE: 2019
